FAERS Safety Report 15841146 (Version 2)
Quarter: 2019Q1

REPORT INFORMATION
  Report Type: Spontaneous
  Country: US (occurrence: US)
  Receive Date: 20190118
  Receipt Date: 20190118
  Transmission Date: 20190417
  Serious: No
  Sender: FDA-Public Use
  Company Number: US-DSJP-DSU-2017-145605

PATIENT

DRUGS (1)
  1. BENICAR [Suspect]
     Active Substance: OLMESARTAN MEDOXOMIL
     Indication: BLOOD PRESSURE MANAGEMENT
     Dosage: 20 MG, QD
     Route: 048
     Dates: start: 20091026, end: 20171122

REACTIONS (9)
  - Sprue-like enteropathy [Recovering/Resolving]
  - Cholelithiasis [Not Recovered/Not Resolved]
  - Dizziness [Unknown]
  - Large intestine polyp [Recovered/Resolved]
  - Hiatus hernia [Unknown]
  - Gastroenteritis viral [Recovering/Resolving]
  - Gastrooesophageal reflux disease [Recovering/Resolving]
  - Diverticulum intestinal [Not Recovered/Not Resolved]
  - Haemorrhoids [Unknown]

NARRATIVE: CASE EVENT DATE: 20120904
